FAERS Safety Report 6033886-8 (Version None)
Quarter: 2009Q1

REPORT INFORMATION
  Report Type: 
  Country: None (occurrence: None)
  Receive Date: 20090108
  Receipt Date: 20090108
  Transmission Date: 20090719
  Serious: Yes (Other)
  Sender: FDA-Public Use
  Company Number: None

PATIENT
  Age: 87 Year
  Sex: Male
  Weight: 73.4827 kg

DRUGS (1)
  1. REQUIP SUSTAINED RELEASE [Suspect]
     Indication: PARKINSON'S DISEASE
     Dosage: 4 MG TID PO
     Route: 048
     Dates: start: 20080611, end: 20081204

REACTIONS (4)
  - BALANCE DISORDER [None]
  - CONDITION AGGRAVATED [None]
  - GAIT DISTURBANCE [None]
  - TREMOR [None]
